FAERS Safety Report 9606215 (Version 2)
Quarter: 2013Q4

REPORT INFORMATION
  Report Type: Spontaneous
  Country: US (occurrence: US)
  Receive Date: 20131008
  Receipt Date: 20131008
  Transmission Date: 20140711
  Serious: No
  Sender: FDA-Public Use
  Company Number: US-AMGEN-USASP2013042384

PATIENT
  Age: 53 Year
  Sex: Female
  Weight: 55.7 kg

DRUGS (5)
  1. PROLIA [Suspect]
     Indication: OSTEOPOROSIS POSTMENOPAUSAL
     Dosage: 60 MG/ML, Q6MO
     Route: 058
     Dates: start: 20130605
  2. CALCIUM [Concomitant]
     Dosage: 600 MG, UNK
  3. VITAMIN D                          /00107901/ [Concomitant]
     Dosage: 1000 IU, QD
  4. CYMBALTA [Concomitant]
  5. DIAZEPAM [Concomitant]

REACTIONS (4)
  - Abdominal pain [Recovered/Resolved]
  - Diarrhoea [Recovered/Resolved]
  - Nausea [Recovered/Resolved]
  - Vomiting [Recovered/Resolved]
